FAERS Safety Report 5339462-4 (Version None)
Quarter: 2007Q2

REPORT INFORMATION
  Report Type: 
  Country: None (occurrence: None)
  Receive Date: 20070404
  Receipt Date: 20060419
  Transmission Date: 20071010
  Serious: Yes (Hospitalization, Other)
  Sender: FDA-Public Use
  Company Number: 2006053115

PATIENT
  Sex: Male

DRUGS (1)
  1. GEODON [Suspect]
     Indication: MOOD ALTERED
     Dosage: 80 MG (80 MG, QD INTERVAL : EVERY DAY) ORAL
     Route: 048
     Dates: start: 20060327

REACTIONS (1)
  - HYPOGLYCAEMIA [None]
